FAERS Safety Report 13298806 (Version 1)
Quarter: 2017Q1

REPORT INFORMATION
  Report Type: Spontaneous
  Country: US (occurrence: US)
  Receive Date: 20170306
  Receipt Date: 20170306
  Transmission Date: 20170428
  Serious: No
  Sender: FDA-Public Use
  Company Number: US-SHIRE-US201704615

PATIENT
  Sex: Male

DRUGS (1)
  1. XIIDRA [Suspect]
     Active Substance: LIFITEGRAST
     Indication: DRY EYE
     Dosage: 1 GTT, 2X/DAY:BID IN BOTH EYES
     Route: 047
     Dates: start: 201701, end: 201701

REACTIONS (2)
  - Instillation site reaction [Unknown]
  - Instillation site pain [Unknown]

NARRATIVE: CASE EVENT DATE: 201701
